FAERS Safety Report 9912056 (Version 1)
Quarter: 2014Q1

REPORT INFORMATION
  Report Type: Spontaneous
  Country: US (occurrence: US)
  Receive Date: 20140219
  Receipt Date: 20140219
  Transmission Date: 20141002
  Serious: No
  Sender: FDA-Public Use
  Company Number: US-009507513-1402USA008880

PATIENT
  Age: 62 Year
  Sex: Female

DRUGS (6)
  1. DULERA [Suspect]
     Indication: ASTHMA
     Dosage: 2 PUFFS TWICE A DAY
     Route: 055
     Dates: start: 201303
  2. NASONEX [Concomitant]
  3. CLARITIN [Concomitant]
     Dosage: CLARITIN 12 HOUR
     Route: 048
  4. CYCLOBENZAPRINE HYDROCHLORIDE [Concomitant]
  5. COUGH, COLD, AND FLU THERAPIES (UNSPECIFIED) [Concomitant]
  6. VITAMINS (UNSPECIFIED) [Concomitant]

REACTIONS (4)
  - Mycotic allergy [Recovered/Resolved]
  - Injection site mass [Recovered/Resolved]
  - Seasonal allergy [Recovered/Resolved]
  - Product packaging quantity issue [Unknown]
